FAERS Safety Report 5453978-1 (Version None)
Quarter: 2007Q3

REPORT INFORMATION
  Report Type: 
  Country: None (occurrence: None)
  Receive Date: 20070917
  Receipt Date: 20070228
  Transmission Date: 20080115
  Serious: Yes (Other)
  Sender: FDA-Public Use
  Company Number: US-ASTRAZENECA-2005UW13236

PATIENT
  Age: 159 Month
  Sex: Female
  Weight: 85 kg

DRUGS (4)
  1. SEROQUEL [Suspect]
     Indication: BIPOLAR I DISORDER
     Route: 048
     Dates: start: 20031001, end: 20041001
  2. PROZAC [Concomitant]
     Indication: BIPOLAR DISORDER
  3. WELBUTRON [Concomitant]
     Indication: BIPOLAR DISORDER
  4. ABILIFY [Concomitant]
     Dates: start: 20060401, end: 20061101

REACTIONS (6)
  - DEPRESSION [None]
  - DIABETIC KETOACIDOSIS [None]
  - GLYCOSURIA [None]
  - HYPERGLYCAEMIA [None]
  - OBESITY [None]
  - TYPE 1 DIABETES MELLITUS [None]
